FAERS Safety Report 4308551-5 (Version None)
Quarter: 2004Q1

REPORT INFORMATION
  Report Type: 
  Country: None (occurrence: None)
  Receive Date: 20040227
  Receipt Date: 20040220
  Transmission Date: 20041129
  Serious: Yes (Other)
  Sender: FDA-Public Use
  Company Number: US-JNJFOC-20040204991

PATIENT
  Age: 65 Year
  Sex: Female

DRUGS (16)
  1. INFLIXIMAB (INFLIXIMAB, RECOMBINANT) LYOPHILIZED POWDER [Suspect]
     Indication: RHEUMATOID ARTHRITIS
     Dosage: INTRAVENOUS
     Route: 042
  2. ZYRTEC [Concomitant]
  3. TYLENOL [Concomitant]
  4. METHOTREXATE [Concomitant]
  5. DICLOFENAC SODIUM [Concomitant]
  6. HYDROXYCHLOROQUINE SULFATE [Concomitant]
  7. FOLIC ACID [Concomitant]
  8. ATENOLOL [Concomitant]
  9. DOXAZOSIN MESYLATE [Concomitant]
  10. ATACAND [Concomitant]
  11. FUROSEMIDE [Concomitant]
  12. PREMARIN [Concomitant]
  13. MULTIVITAMIN (MULTIVITAMIN) [Concomitant]
  14. CALCIUM (CALCIUM) [Concomitant]
  15. HYDROCODONE (HYDROCODONE) [Concomitant]
  16. ZANTAC [Concomitant]

REACTIONS (1)
  - BASAL CELL CARCINOMA [None]
